FAERS Safety Report 7152476-7 (Version None)
Quarter: 2010Q4

REPORT INFORMATION
  Report Type: 
  Country: None (occurrence: None)
  Receive Date: 20101213
  Receipt Date: 20101118
  Transmission Date: 20110411
  Serious: No
  Sender: FDA-Public Use
  Company Number: US-PFIZER INC-US-WYE-H18165710

PATIENT
  Age: 21 Month

DRUGS (1)
  1. CHILDREN'S ADVIL [Suspect]
     Dosage: UNK, UNKNOWN AMOUNT
     Route: 048
     Dates: start: 20101013, end: 20101013

REACTIONS (4)
  - ACCIDENTAL DRUG INTAKE BY CHILD [None]
  - ACCIDENTAL OVERDOSE [None]
  - CRYING [None]
  - PRODUCT CLOSURE ISSUE [None]
